FAERS Safety Report 17205690 (Version 6)
Quarter: 2020Q1

REPORT INFORMATION
  Report Type: Spontaneous
  Country: JP (occurrence: JP)
  Receive Date: 20191227
  Receipt Date: 20200214
  Transmission Date: 20200409
  Serious: Yes (Other)
  Sender: FDA-Public Use
  Company Number: JP-009507513-1912JPN003942J

PATIENT
  Age: 25 Year
  Sex: Male
  Weight: 66 kg

DRUGS (3)
  1. DESALEX TABLETS 5MG [Suspect]
     Active Substance: DESLORATADINE
     Indication: RHINITIS ALLERGIC
     Dosage: 5 MILLIGRAM, QD
     Route: 048
     Dates: start: 20191218, end: 20191221
  2. MONTELUKAST SODIUM. [Suspect]
     Active Substance: MONTELUKAST SODIUM
     Indication: RHINITIS ALLERGIC
     Dosage: 10 MILLIGRAM, QD
     Route: 048
     Dates: start: 20191218, end: 20191221
  3. ERIZAS [Concomitant]
     Indication: RHINITIS ALLERGIC
     Dosage: 200 MICROGRAM, QD
     Route: 045
     Dates: start: 20191218, end: 20191221

REACTIONS (2)
  - Loss of consciousness [Recovered/Resolved]
  - Generalised tonic-clonic seizure [Recovered/Resolved]

NARRATIVE: CASE EVENT DATE: 20191221
